FAERS Safety Report 16629457 (Version 1)
Quarter: 2019Q3

REPORT INFORMATION
  Report Type: Spontaneous
  Country: AR (occurrence: AR)
  Receive Date: 20190725
  Receipt Date: 20190725
  Transmission Date: 20191004
  Serious: Yes (Other)
  Sender: FDA-Public Use
  Company Number: AR-ASTRAZENECA-2019SF05980

PATIENT
  Age: 12068 Day
  Sex: Female
  Weight: 54 kg

DRUGS (5)
  1. LORAZEPAM. [Suspect]
     Active Substance: LORAZEPAM
     Route: 065
     Dates: start: 201806
  2. LACOSAMIDE. [Suspect]
     Active Substance: LACOSAMIDE
     Route: 065
     Dates: start: 201806
  3. SEROQUEL [Suspect]
     Active Substance: QUETIAPINE FUMARATE
     Route: 048
     Dates: start: 201806
  4. ACETAZOLAMIDE. [Suspect]
     Active Substance: ACETAZOLAMIDE
     Route: 065
  5. OMEPRAZOL [Suspect]
     Active Substance: OMEPRAZOLE
     Route: 048

REACTIONS (11)
  - Breast inflammation [Unknown]
  - Seizure [Unknown]
  - Bone pain [Unknown]
  - Foaming at mouth [Unknown]
  - Hypotension [Unknown]
  - Vomiting [Unknown]
  - Arthralgia [Unknown]
  - Hypoaesthesia [Unknown]
  - Dry eye [Unknown]
  - Dysuria [Unknown]
  - Paraesthesia [Unknown]

NARRATIVE: CASE EVENT DATE: 20190701
